FAERS Safety Report 7014753-X (Version None)
Quarter: 2010Q3

REPORT INFORMATION
  Report Type: 
  Country: None (occurrence: None)
  Receive Date: 20100922
  Receipt Date: 20100910
  Transmission Date: 20110219
  Serious: Yes (Hospitalization)
  Sender: FDA-Public Use
  Company Number: UTC-001431

PATIENT
  Age: 65 Year
  Sex: Female

DRUGS (21)
  1. REMODULIN [Suspect]
     Dosage: 129.6 UG/KG (0.09 UG/KG, 1 IN 1 MIN), SUBCUTANEOUS
     Route: 058
     Dates: start: 20081017
  2. LASIX [Concomitant]
  3. COUMADIN [Concomitant]
  4. LYRICA [Concomitant]
  5. K-DUR (POTASSIUM) [Concomitant]
  6. LANTUS [Concomitant]
  7. CITALOPRAM HYDROBROMIDE [Concomitant]
  8. SIMVASTATIN [Concomitant]
  9. METOLAZONE [Concomitant]
  10. NOVOLOG [Concomitant]
  11. HYDROCODONE W/APAP (PROCET /01554201/) [Concomitant]
  12. METOPROLOL SUCCINATE [Concomitant]
  13. FENTANYL-100 [Concomitant]
  14. LEVOTHYROID (LEVOTHYROXINE SODIUM) [Concomitant]
  15. MIRAPEX (PRAMIPRXOLE DIHYDROCHLORIDE) [Concomitant]
  16. FERROUS GLUCONATE (FERROUS GLUCONATE) [Concomitant]
  17. VITAMIN D [Concomitant]
  18. SENNA (SENNA ALEXANDRINA) [Concomitant]
  19. LIDODERM [Concomitant]
  20. TRIAMCINOLONE [Concomitant]
  21. DOCUSATE (DOCUSATE) [Concomitant]

REACTIONS (8)
  - ASTHENIA [None]
  - DISORIENTATION [None]
  - DYSARTHRIA [None]
  - FALL [None]
  - HAEMATOMA [None]
  - HEAD INJURY [None]
  - SOMNOLENCE [None]
  - UPPER LIMB FRACTURE [None]
